FAERS Safety Report 13765621 (Version 1)
Quarter: 2017Q3

REPORT INFORMATION
  Report Type: Spontaneous
  Country: GB (occurrence: GB)
  Receive Date: 20170718
  Receipt Date: 20170718
  Transmission Date: 20171127
  Serious: Yes (Hospitalization)
  Sender: FDA-Public Use
  Company Number: GB-PFIZER INC-486036

PATIENT
  Age: 12 Year
  Sex: Female
  Weight: 55 kg

DRUGS (4)
  1. TEGRETOL [Suspect]
     Active Substance: CARBAMAZEPINE
     Indication: EPILEPSY
     Dosage: 600 MG, FREQ: 2 DAY
     Route: 048
     Dates: start: 20050317
  2. METHOTREXATE SODIUM. [Suspect]
     Active Substance: METHOTREXATE SODIUM
     Indication: JUVENILE IDIOPATHIC ARTHRITIS
     Dosage: 22.5 MG, FREQ: 1 WEEK
     Route: 048
     Dates: start: 200212
  3. IBUPROFEN. [Concomitant]
     Active Substance: IBUPROFEN
     Dosage: 400 MG, UNK
     Route: 048
     Dates: start: 200404
  4. RANITIDINE. [Concomitant]
     Active Substance: RANITIDINE
     Indication: GASTRITIS
     Dosage: 50 MG, UNK
     Route: 048
     Dates: start: 200503

REACTIONS (4)
  - Anticonvulsant drug level increased [Unknown]
  - Anticonvulsant drug level decreased [Unknown]
  - Epilepsy [Not Recovered/Not Resolved]
  - Ataxia [Unknown]

NARRATIVE: CASE EVENT DATE: 200604
